FAERS Safety Report 19162029 (Version 1)
Quarter: 2021Q2

REPORT INFORMATION
  Report Type: Spontaneous
  Country: US (occurrence: US)
  Receive Date: 20210421
  Receipt Date: 20210421
  Transmission Date: 20210717
  Serious: No
  Sender: FDA-Public Use
  Company Number: US-UNICHEM PHARMACEUTICALS (USA) INC-UCM202005-000596

PATIENT
  Sex: Female
  Weight: 79.39 kg

DRUGS (5)
  1. TOPIRAMATE. [Suspect]
     Active Substance: TOPIRAMATE
     Indication: MIGRAINE
     Dates: start: 202001, end: 202002
  2. TOPIRAMATE. [Suspect]
     Active Substance: TOPIRAMATE
     Dosage: 25 MG IN MORNING AND 75 MG IN EVENING
     Dates: start: 202004, end: 20200428
  3. TOPIRAMATE. [Suspect]
     Active Substance: TOPIRAMATE
     Indication: NERVE INJURY
     Dates: start: 202002, end: 20200301
  4. LEVOTHYROXINE. [Concomitant]
     Active Substance: LEVOTHYROXINE
     Indication: HYPERTHYROIDISM
  5. TOPIRAMATE. [Suspect]
     Active Substance: TOPIRAMATE
     Dates: start: 20200428, end: 20200428

REACTIONS (8)
  - Chest pain [Recovered/Resolved]
  - Product colour issue [Unknown]
  - Seizure [Recovered/Resolved]
  - Discomfort [Recovered/Resolved]
  - Ocular discomfort [Recovered/Resolved]
  - Skin disorder [Recovered/Resolved]
  - Tongue discomfort [Recovering/Resolving]
  - Paranasal sinus discomfort [Recovered/Resolved]
